FAERS Safety Report 8577400-1 (Version None)
Quarter: 2012Q3

REPORT INFORMATION
  Report Type: 
  Country: None (occurrence: None)
  Receive Date: 20120807
  Receipt Date: 20120730
  Transmission Date: 20120928
  Serious: Yes (Hospitalization, Other)
  Sender: FDA-Public Use
  Company Number: JP-VERTEX PHARMACEUTICALS INC.-AE-2012-008971

PATIENT
  Age: 62 Year
  Sex: Male

DRUGS (10)
  1. REBETOL [Concomitant]
     Route: 048
     Dates: start: 20120515
  2. PEGINTERFERON ALFA-2B [Concomitant]
     Indication: HEPATITIS C
     Route: 058
     Dates: start: 20120418
  3. MOTILIUM [Concomitant]
     Route: 048
     Dates: start: 20120420
  4. REBETOL [Concomitant]
     Route: 048
     Dates: start: 20120508, end: 20120508
  5. REBETOL [Concomitant]
     Route: 048
     Dates: start: 20120509, end: 20120514
  6. TELAVIC [Suspect]
     Route: 048
     Dates: start: 20120613, end: 20120709
  7. MALTOSE [Concomitant]
     Dates: start: 20120425, end: 20120501
  8. TELAVIC [Suspect]
     Indication: HEPATITIS C
     Route: 048
     Dates: start: 20120418, end: 20120425
  9. TELAVIC [Suspect]
     Route: 048
     Dates: start: 20120426, end: 20120612
  10. REBETOL [Concomitant]
     Indication: HEPATITIS C
     Route: 048
     Dates: start: 20120418, end: 20120507

REACTIONS (6)
  - WHITE BLOOD CELL COUNT DECREASED [None]
  - ANAEMIA [None]
  - MALAISE [None]
  - VOMITING [None]
  - NAUSEA [None]
  - DECREASED APPETITE [None]
